FAERS Safety Report 22789669 (Version 7)
Quarter: 2024Q3

REPORT INFORMATION
  Report Type: Spontaneous
  Country: US (occurrence: US)
  Receive Date: 20230804
  Receipt Date: 20240801
  Transmission Date: 20241017
  Serious: Yes (Other)
  Sender: PFIZER
  Company Number: US-PFIZER INC-PV202300133513

PATIENT
  Age: 78 Year
  Sex: Female
  Weight: 77.098 kg

DRUGS (4)
  1. XELJANZ [Suspect]
     Active Substance: TOFACITINIB CITRATE
     Indication: Gastrointestinal pain
     Dosage: 5MG 2 TIMES DAILY
     Route: 048
     Dates: start: 202308
  2. XELJANZ [Suspect]
     Active Substance: TOFACITINIB CITRATE
     Indication: Diarrhoea
     Dosage: TAKE 10 MG BY MOUTH 2 (TWO) TIMES DAILY
     Route: 048
  3. XELJANZ [Suspect]
     Active Substance: TOFACITINIB CITRATE
     Indication: Crohn^s disease
  4. COLESTIPOL HYDROCHLORIDE [Concomitant]
     Active Substance: COLESTIPOL HYDROCHLORIDE
     Dosage: 5 G

REACTIONS (12)
  - Throat cancer [Unknown]
  - Laser therapy [Unknown]
  - Off label use [Unknown]
  - Drug effective for unapproved indication [Unknown]
  - Product prescribing error [Unknown]
  - Speech disorder [Unknown]
  - Eye disorder [Unknown]
  - Abdominal distension [Unknown]
  - Early satiety [Unknown]
  - Constipation [Unknown]
  - Flatulence [Unknown]
  - Scar [Unknown]
